FAERS Safety Report 5627053-7 (Version None)
Quarter: 2008Q1

REPORT INFORMATION
  Report Type: 
  Country: None (occurrence: None)
  Receive Date: 20080116
  Receipt Date: 20070628
  Transmission Date: 20080703
  Serious: Yes (Other)
  Sender: FDA-Public Use
  Company Number: BDI-009800

PATIENT
  Age: 68 Year
  Sex: Female

DRUGS (1)
  1. PROHANCE [Suspect]
     Indication: INTERMITTENT CLAUDICATION
     Dosage: 60 ML ONCE IV
     Route: 042
     Dates: start: 20070628, end: 20070628

REACTIONS (1)
  - ANAPHYLACTIC REACTION [None]
